FAERS Safety Report 11520940 (Version 1)
Quarter: 2015Q3

REPORT INFORMATION
  Report Type: Spontaneous
  Country: US (occurrence: US)
  Receive Date: 20150918
  Receipt Date: 20150918
  Transmission Date: 20151125
  Serious: Yes (Other)
  Sender: FDA-Public Use
  Company Number: US-ROCHE-477701

PATIENT
  Age: 41 Year
  Sex: Female
  Weight: 96.2 kg

DRUGS (11)
  1. RIBAVIRIN. [Suspect]
     Active Substance: RIBAVIRIN
     Indication: HEPATITIS C
     Dosage: THE PATIENT TOOK 2 TABLETS IN THE MORNING AND 2 TABLETS IN THE EVENING.
     Route: 065
     Dates: start: 20060921, end: 20070302
  2. STOOL SOFTENER NOS [Concomitant]
     Route: 065
  3. PEGASYS [Suspect]
     Active Substance: PEGINTERFERON ALFA-2A
     Indication: HEPATITIS C
     Dosage: FORM: PRE FILLED SYRINGE
     Route: 058
     Dates: start: 20060921, end: 20070302
  4. PAXIL [Suspect]
     Active Substance: PAROXETINE HYDROCHLORIDE
     Indication: DEPRESSION
     Dosage: THE PATIENT DECREASED HER PAROXETINE DOSE ON APPROXIMATELY 21 AUGUST 2006.
     Route: 065
  5. VICOPROFEN [Concomitant]
     Active Substance: HYDROCODONE BITARTRATE\IBUPROFEN
     Indication: NECK PAIN
     Route: 065
  6. AMBIEN [Concomitant]
     Active Substance: ZOLPIDEM TARTRATE
     Route: 065
  7. ZYRTEC [Concomitant]
     Active Substance: CETIRIZINE HYDROCHLORIDE
     Route: 065
  8. PAXIL [Suspect]
     Active Substance: PAROXETINE HYDROCHLORIDE
     Dosage: DOSE INCREASED DUE TO WORSENING DEPRESSION.
     Route: 065
  9. XANAX [Concomitant]
     Active Substance: ALPRAZOLAM
     Route: 065
  10. NASONEX [Concomitant]
     Active Substance: MOMETASONE FUROATE
     Route: 065
  11. PREVACID [Concomitant]
     Active Substance: LANSOPRAZOLE
     Route: 065

REACTIONS (15)
  - Blood thyroid stimulating hormone increased [Not Recovered/Not Resolved]
  - Insomnia [Not Recovered/Not Resolved]
  - Decreased appetite [Unknown]
  - Psychotic disorder [Recovering/Resolving]
  - Depression [Not Recovered/Not Resolved]
  - Thinking abnormal [Recovering/Resolving]
  - Asthenia [Not Recovered/Not Resolved]
  - Angular cheilitis [Recovering/Resolving]
  - Candida infection [Unknown]
  - Hypothyroidism [Not Recovered/Not Resolved]
  - Pain in extremity [Recovering/Resolving]
  - Myalgia [Recovering/Resolving]
  - White blood cell count decreased [Unknown]
  - Myositis [Recovering/Resolving]
  - Peripheral swelling [Unknown]

NARRATIVE: CASE EVENT DATE: 20061017
